FAERS Safety Report 10541544 (Version 3)
Quarter: 2014Q4

REPORT INFORMATION
  Report Type: Report from Study
  Country: RU (occurrence: RU)
  Receive Date: 20141024
  Receipt Date: 20141029
  Transmission Date: 20150529
  Serious: Yes (Life-Threatening, Hospitalization, Disabling, Other)
  Sender: FDA-Public Use
  Company Number: RU-GLAXOSMITHKLINE-B1025481A

PATIENT
  Sex: Female
  Weight: 66.2 kg

DRUGS (6)
  1. PLACEBO [Suspect]
     Active Substance: UNSPECIFIED INGREDIENT
     Indication: CHRONIC OBSTRUCTIVE PULMONARY DISEASE
     Dosage: UNK
     Route: 065
     Dates: start: 20140204, end: 20140814
  2. SPIRIVA [Concomitant]
     Active Substance: TIOTROPIUM BROMIDE MONOHYDRATE
     Indication: CHRONIC OBSTRUCTIVE PULMONARY DISEASE
     Route: 055
     Dates: start: 20130716, end: 20131030
  3. BLINDED FLUTICASONE PROPIONATE+SALMETEROL XINAFOATE [Suspect]
     Active Substance: FLUTICASONE PROPIONATE\SALMETEROL XINAFOATE
     Indication: CHRONIC OBSTRUCTIVE PULMONARY DISEASE
     Dosage: UNK
     Route: 065
     Dates: start: 20140204, end: 20140814
  4. EGILOK [Concomitant]
     Active Substance: METOPROLOL TARTRATE
     Indication: MYOCARDIAL ISCHAEMIA
     Route: 048
     Dates: start: 20120801
  5. BERODUAL [Concomitant]
     Active Substance: FENOTEROL HYDROBROMIDE\IPRATROPIUM BROMIDE
     Indication: CHRONIC OBSTRUCTIVE PULMONARY DISEASE
     Dosage: 20/50MCG WHN REQUIRED.
     Route: 055
     Dates: start: 20130101, end: 20140113
  6. BLINDED NO THERAPY [Suspect]
     Active Substance: UNSPECIFIED INGREDIENT
     Indication: CHRONIC OBSTRUCTIVE PULMONARY DISEASE
     Dosage: UNK
     Route: 065
     Dates: start: 20140204, end: 20140814

REACTIONS (3)
  - Leg amputation [Recovered/Resolved with Sequelae]
  - Gangrene [Recovered/Resolved with Sequelae]
  - Toe amputation [Recovered/Resolved with Sequelae]

NARRATIVE: CASE EVENT DATE: 20140722
